FAERS Safety Report 16498500 (Version 1)
Quarter: 2019Q2

REPORT INFORMATION
  Report Type: Spontaneous
  Country: DE (occurrence: DE)
  Receive Date: 20190629
  Receipt Date: 20190629
  Transmission Date: 20190711
  Serious: Yes (Hospitalization, Other)
  Sender: FDA-Public Use
  Company Number: DE-ACCORD-031555

PATIENT
  Age: 42 Year
  Sex: Female
  Weight: 57 kg

DRUGS (1)
  1. FUROSEMIDE. [Suspect]
     Active Substance: FUROSEMIDE
     Indication: BULIMIA NERVOSA
     Dosage: INITIALLY RECEIVED AT LOW DOSE AND THEN DOSE WAS INCREASED
     Route: 048

REACTIONS (15)
  - Blood chloride decreased [Unknown]
  - Nephrocalcinosis [Recovered/Resolved]
  - Drug ineffective [Unknown]
  - Drug dependence [Unknown]
  - Purging [Unknown]
  - Peripheral swelling [Unknown]
  - Intentional overdose [Unknown]
  - Restlessness [Recovering/Resolving]
  - Drug tolerance [Unknown]
  - Drug abuse [Unknown]
  - Weight increased [Unknown]
  - Oedema [Recovering/Resolving]
  - Hypokalaemia [Recovered/Resolved]
  - Withdrawal syndrome [Unknown]
  - Anxiety [Recovering/Resolving]
